FAERS Safety Report 7672560-9 (Version None)
Quarter: 2011Q3

REPORT INFORMATION
  Report Type: 
  Country: None (occurrence: None)
  Receive Date: 20110804
  Receipt Date: 20110727
  Transmission Date: 20111222
  Serious: Yes (Hospitalization, Other)
  Sender: FDA-Public Use
  Company Number: 2011S1000045

PATIENT
  Age: 16 Year
  Sex: Female

DRUGS (9)
  1. TYLENOL-500 [Concomitant]
  2. PREDNISONE [Concomitant]
  3. KRYSTEXXA [Suspect]
     Indication: GOUT
     Dosage: 8 MG; X1; IV    8 MG; X1; IV
     Route: 042
     Dates: start: 20110626, end: 20110626
  4. KRYSTEXXA [Suspect]
     Indication: GOUT
     Dosage: 8 MG; X1; IV    8 MG; X1; IV
     Route: 042
     Dates: start: 20110711, end: 20110711
  5. COLCHICINE [Concomitant]
  6. UROCIT-K [Concomitant]
  7. SOLU-MEDROL [Concomitant]
  8. BENADRYL [Concomitant]
  9. SYNTHROID [Concomitant]

REACTIONS (7)
  - RENAL FAILURE [None]
  - GOUT [None]
  - OFF LABEL USE [None]
  - NEPHROLITHIASIS [None]
  - ANAPHYLACTIC REACTION [None]
  - ARTHRITIS [None]
  - DEHYDRATION [None]
